FAERS Safety Report 21370000 (Version 1)
Quarter: 2022Q3

REPORT INFORMATION
  Report Type: Spontaneous
  Country: CA (occurrence: CA)
  Receive Date: 20220923
  Receipt Date: 20220923
  Transmission Date: 20221026
  Serious: Yes (Other)
  Sender: FDA-Public Use
  Company Number: CA-TEVA-2022-CA-2074861

PATIENT
  Age: 15 Year
  Sex: Male
  Weight: 127 kg

DRUGS (15)
  1. CLONIDINE [Suspect]
     Active Substance: CLONIDINE
     Indication: Intellectual disability
     Route: 065
  2. CLONIDINE [Suspect]
     Active Substance: CLONIDINE
     Indication: Behaviour disorder
     Route: 065
  3. CLONIDINE [Suspect]
     Active Substance: CLONIDINE
     Indication: Autism spectrum disorder
     Dosage: 730.0 DAYS
     Route: 065
  4. LAMOTRIGINE [Suspect]
     Active Substance: LAMOTRIGINE
     Indication: Behavioural therapy
     Route: 065
  5. LAMOTRIGINE [Suspect]
     Active Substance: LAMOTRIGINE
     Indication: Autism spectrum disorder
     Dosage: 25 MILLIGRAM DAILY; 214.0 DAYS
     Route: 065
  6. OLANZAPINE [Suspect]
     Active Substance: OLANZAPINE
     Indication: Intellectual disability
     Route: 065
  7. OLANZAPINE [Suspect]
     Active Substance: OLANZAPINE
     Indication: Behaviour disorder
     Route: 065
  8. OLANZAPINE [Suspect]
     Active Substance: OLANZAPINE
     Indication: Autism spectrum disorder
     Dosage: 730.0 DAYS
     Route: 065
  9. QUETIAPINE [Suspect]
     Active Substance: QUETIAPINE
     Indication: Intellectual disability
     Dosage: 500 MILLIGRAM DAILY; 730.0 DAYS
     Route: 065
  10. QUETIAPINE [Suspect]
     Active Substance: QUETIAPINE
     Indication: Behaviour disorder
     Route: 065
  11. QUETIAPINE [Suspect]
     Active Substance: QUETIAPINE
     Indication: Autism spectrum disorder
     Route: 065
  12. SERTRALINE [Suspect]
     Active Substance: SERTRALINE HYDROCHLORIDE
     Indication: Intellectual disability
     Route: 065
  13. SERTRALINE [Suspect]
     Active Substance: SERTRALINE HYDROCHLORIDE
     Indication: Behaviour disorder
     Dosage: 100 MILLIGRAM DAILY; 730.0 DAYS
     Route: 065
  14. SERTRALINE [Suspect]
     Active Substance: SERTRALINE HYDROCHLORIDE
     Indication: Autism spectrum disorder
     Route: 065
  15. ZIPRASIDONE [Suspect]
     Active Substance: ZIPRASIDONE
     Indication: Autism spectrum disorder
     Route: 065

REACTIONS (6)
  - Aggression [Unknown]
  - Blood prolactin increased [Unknown]
  - Obesity [Unknown]
  - Off label use [Unknown]
  - Product prescribing issue [Unknown]
  - Product use issue [Unknown]
